FAERS Safety Report 5837779-8 (Version None)
Quarter: 2008Q3

REPORT INFORMATION
  Report Type: 
  Country: None (occurrence: None)
  Receive Date: 20080807
  Receipt Date: 20080729
  Transmission Date: 20090109
  Serious: Yes (Other)
  Sender: FDA-Public Use
  Company Number: US-GENENTECH-265521

PATIENT

DRUGS (7)
  1. RITUXAN [Suspect]
     Indication: B-CELL LYMPHOMA
     Dosage: 375 MG/M2, DAY 13 PRETRANSPLANTATION
     Route: 042
  2. RITUXAN [Suspect]
     Dosage: 1000 MG/M2, DAY 6 PRETRANSPLANTATION, DAY 1 AND DAY 8
     Route: 042
  3. FLUDARABINE PHOSPHATE [Suspect]
     Indication: B-CELL LYMPHOMA
     Dosage: 30 MG/M2, QD
     Route: 042
  4. CYCLOPHOSPHAMIDE [Suspect]
     Indication: B-CELL LYMPHOMA
     Dosage: 750 MG/M2, UNK
     Route: 042
  5. TACROLIMUS [Concomitant]
     Indication: PROPHYLAXIS
  6. METHOTREXATE [Concomitant]
     Indication: PROPHYLAXIS
  7. FILGRASTIM [Concomitant]
     Indication: DRUG USE FOR UNKNOWN INDICATION

REACTIONS (1)
  - BONE PAIN [None]
